FAERS Safety Report 7758607-X (Version None)
Quarter: 2011Q3

REPORT INFORMATION
  Report Type: 
  Country: None (occurrence: None)
  Receive Date: 20110919
  Receipt Date: 20110907
  Transmission Date: 20111222
  Serious: Yes (Life-Threatening, Hospitalization)
  Sender: FDA-Public Use
  Company Number: JP-CELGENEUS-087-50794-11053388

PATIENT
  Sex: Male
  Weight: 62 kg

DRUGS (19)
  1. VIDAZA [Suspect]
     Route: 058
     Dates: start: 20110404, end: 20110410
  2. VERAPAMIL HCL [Concomitant]
     Route: 065
  3. EXJADE [Concomitant]
     Route: 065
  4. GRAN [Concomitant]
     Route: 065
     Dates: start: 20110516, end: 20110522
  5. OMEPRAZOLE [Concomitant]
     Route: 065
  6. HUMULIN R [Concomitant]
     Route: 065
  7. SITAGLIPTIN PHOSPHATE [Concomitant]
     Route: 065
     Dates: start: 20110419, end: 20110516
  8. ALOXI [Concomitant]
     Route: 065
  9. AMARYL [Concomitant]
     Route: 065
     Dates: end: 20110516
  10. VIDAZA [Suspect]
     Dosage: 75 MILLIGRAM/SQ. METER
     Route: 041
     Dates: start: 20110502, end: 20110508
  11. RED BLOOD CELLS [Concomitant]
     Route: 065
  12. DORIPENEM MONOHYDRATE [Concomitant]
     Route: 065
     Dates: start: 20110515, end: 20110525
  13. SOLU-CORTEF [Concomitant]
     Route: 065
  14. MAGNESIUM OXIDE [Concomitant]
     Route: 065
  15. PLATELETS [Concomitant]
     Route: 065
  16. MAXIPIME [Concomitant]
     Route: 065
     Dates: start: 20110515, end: 20110518
  17. VFEND [Concomitant]
     Indication: PROPHYLAXIS
     Route: 065
  18. SANDOGLOBULIN [Concomitant]
     Route: 065
     Dates: start: 20110518, end: 20110520
  19. PENLEIV [Concomitant]
     Route: 065
     Dates: start: 20110518, end: 20110524

REACTIONS (2)
  - FEBRILE NEUTROPENIA [None]
  - WHITE BLOOD CELL COUNT DECREASED [None]
